FAERS Safety Report 4689993-5 (Version None)
Quarter: 2005Q2

REPORT INFORMATION
  Report Type: 
  Country: None (occurrence: None)
  Receive Date: 20050513
  Receipt Date: 20040407
  Transmission Date: 20051028
  Serious: Yes (Hospitalization, Disabling)
  Sender: FDA-Public Use
  Company Number: 364025

PATIENT
  Age: 47 Year
  Sex: Female
  Weight: 78.8 kg

DRUGS (2)
  1. VALCYTE [Suspect]
     Indication: CYTOMEGALOVIRUS INFECTION
     Dosage: 900 MG 2 PER DAY ORAL
     Route: 048
     Dates: start: 20040311, end: 20040319
  2. IMMUNOSUPPRESSANT NOS (IMMUNOSUPPRESSANT NOS) [Concomitant]

REACTIONS (2)
  - CONDITION AGGRAVATED [None]
  - CYTOMEGALOVIRUS INFECTION [None]
